FAERS Safety Report 24771909 (Version 1)
Quarter: 2024Q4

REPORT INFORMATION
  Report Type: Spontaneous
  Country: US (occurrence: US)
  Receive Date: 20241224
  Receipt Date: 20241224
  Transmission Date: 20250114
  Serious: Yes (Hospitalization)
  Sender: DAIICHI
  Company Number: US-DAIICHI SANKYO, INC.-DS-2024-114257-USAA

PATIENT
  Age: 61 Year
  Sex: Female

DRUGS (1)
  1. ENHERTU [Suspect]
     Active Substance: FAM-TRASTUZUMAB DERUXTECAN-NXKI
     Indication: Triple positive breast cancer
     Dosage: UNK, ONCE EVERY 3 WK
     Route: 042
     Dates: start: 2020

REACTIONS (3)
  - Ejection fraction decreased [Unknown]
  - Thrombosis [Unknown]
  - Weight increased [Unknown]

NARRATIVE: CASE EVENT DATE: 20240101
